FAERS Safety Report 5035011-9 (Version None)
Quarter: 2006Q2

REPORT INFORMATION
  Report Type: 
  Country: None (occurrence: None)
  Receive Date: 20060622
  Receipt Date: 20060622
  Transmission Date: 20061013
  Serious: Yes (Life-Threatening, Hospitalization)
  Sender: FDA-Public Use
  Company Number: None

PATIENT
  Sex: Female
  Weight: 70.3075 kg

DRUGS (1)
  1. CYMBALTA [Suspect]
     Indication: DEPRESSION
     Dosage: 90 MG 1X/DAY PO
     Route: 048
     Dates: start: 20051019, end: 20060419

REACTIONS (3)
  - GUN SHOT WOUND [None]
  - SCAR [None]
  - SUICIDE ATTEMPT [None]
